FAERS Safety Report 21374060 (Version 2)
Quarter: 2022Q3

REPORT INFORMATION
  Report Type: Report from Study
  Country: US (occurrence: US)
  Receive Date: 20220926
  Receipt Date: 20220930
  Transmission Date: 20221027
  Serious: No
  Sender: FDA-Public Use
  Company Number: US-NOVARTISTESTPH-NVSC2022US213638

PATIENT
  Sex: Female

DRUGS (1)
  1. KESIMPTA [Suspect]
     Active Substance: OFATUMUMAB
     Indication: Product used for unknown indication
     Dosage: UNK
     Route: 065

REACTIONS (9)
  - Breakthrough pain [Unknown]
  - Pain in extremity [Unknown]
  - Limb discomfort [Unknown]
  - Musculoskeletal disorder [Unknown]
  - Injection related reaction [Unknown]
  - Restlessness [Unknown]
  - Malaise [Unknown]
  - Fatigue [Unknown]
  - Pain [Unknown]
